FAERS Safety Report 9631350 (Version 1)
Quarter: 2013Q4

REPORT INFORMATION
  Report Type: Spontaneous
  Country: US (occurrence: None)
  Receive Date: 20131017
  Receipt Date: 20131017
  Transmission Date: 20140711
  Serious: Yes (Hospitalization)
  Sender: FDA-Public Use
  Company Number: None

PATIENT
  Age: 46 Year
  Sex: Female

DRUGS (2)
  1. TACROLIMUS [Suspect]
     Indication: STEM CELL TRANSPLANT
     Dosage: 3 MGS, BID, 047
     Dates: start: 20130716, end: 20130913
  2. TACROLIMUS [Suspect]
     Dosage: 0.5 MGS, BID, 047
     Dates: start: 20130716, end: 20130913

REACTIONS (5)
  - Neurotoxicity [None]
  - Fatigue [None]
  - Tremor [None]
  - Dizziness [None]
  - Dyspnoea [None]
